FAERS Safety Report 17593929 (Version 1)
Quarter: 2020Q1

REPORT INFORMATION
  Report Type: Spontaneous
  Country: JP (occurrence: JP)
  Receive Date: 20200327
  Receipt Date: 20200327
  Transmission Date: 20200409
  Serious: Yes (Death, Hospitalization, Other)
  Sender: FDA-Public Use
  Company Number: JP-VALIDUS PHARMACEUTICALS LLC-JP-2020VAL000224

PATIENT

DRUGS (6)
  1. CEFOTAXIME SODIUM [Suspect]
     Active Substance: CEFOTAXIME SODIUM
     Indication: SEPSIS NEONATAL
     Dosage: UNK
     Route: 065
  2. AMIKACIN SULFATE. [Suspect]
     Active Substance: AMIKACIN SULFATE
     Indication: SEPSIS NEONATAL
     Dosage: UNK
     Route: 065
  3. AMIKACIN SULFATE. [Suspect]
     Active Substance: AMIKACIN SULFATE
     Indication: MENINGITIS BACTERIAL
  4. AMPICILLIN [Suspect]
     Active Substance: AMPICILLIN
     Indication: SEPSIS NEONATAL
     Dosage: UNK
     Route: 065
  5. AMPICILLIN [Suspect]
     Active Substance: AMPICILLIN
     Indication: MENINGITIS BACTERIAL
  6. CEFOTAXIME SODIUM [Suspect]
     Active Substance: CEFOTAXIME SODIUM
     Indication: MENINGITIS BACTERIAL

REACTIONS (5)
  - Drug resistance [Fatal]
  - Meningitis bacterial [Fatal]
  - Off label use [Unknown]
  - Sepsis neonatal [Fatal]
  - Escherichia sepsis [Fatal]
